FAERS Safety Report 20578922 (Version 1)
Quarter: 2022Q1

REPORT INFORMATION
  Report Type: Spontaneous
  Country: US (occurrence: None)
  Receive Date: 20220310
  Receipt Date: 20220310
  Transmission Date: 20220424
  Serious: Yes (Life-Threatening, Hospitalization)
  Sender: FDA-Public Use
  Company Number: None

PATIENT
  Age: 50 Year
  Sex: Male
  Weight: 116 kg

DRUGS (1)
  1. ZOLPIDEM TARTRATE [Suspect]
     Active Substance: ZOLPIDEM TARTRATE
     Indication: Insomnia
     Dosage: OTHER QUANTITY : 5-10MG;?FREQUENCY : AT BEDTIME;?
     Route: 048
     Dates: start: 20201022, end: 20201024

REACTIONS (6)
  - Sleep paralysis [None]
  - Tachyphrenia [None]
  - Suicidal ideation [None]
  - Suicide attempt [None]
  - Memory impairment [None]
  - Anxiety [None]

NARRATIVE: CASE EVENT DATE: 20201024
